FAERS Safety Report 4793928-4 (Version None)
Quarter: 2005Q4

REPORT INFORMATION
  Report Type: 
  Country: None (occurrence: None)
  Receive Date: 20051011
  Receipt Date: 20050926
  Transmission Date: 20060501
  Serious: Yes (Hospitalization)
  Sender: FDA-Public Use
  Company Number: GB-MERCK-0509GBR00180

PATIENT
  Age: 55 Year
  Sex: Male

DRUGS (10)
  1. ALDOMET [Suspect]
     Route: 048
  2. ISOSORBIDE MONONITRATE [Suspect]
     Route: 065
  3. ASPIRIN [Suspect]
     Route: 065
  4. ATORVASTATIN CALCIUM [Suspect]
     Route: 065
  5. BENDROFLUMETHIAZIDE [Suspect]
     Route: 065
  6. RAMIPRIL [Suspect]
     Route: 065
  7. AMLODIPINE BESYLATE [Suspect]
     Route: 065
  8. PIOGLITAZONE HYDROCHLORIDE [Suspect]
     Route: 065
  9. METFORMIN [Suspect]
     Route: 065
  10. HYDRALAZINE HYDROCHLORIDE [Suspect]
     Route: 065

REACTIONS (12)
  - ATRIAL FIBRILLATION [None]
  - CEREBRAL HAEMATOMA [None]
  - DYSARTHRIA [None]
  - GLUCOSE URINE PRESENT [None]
  - HAEMOGLOBIN DECREASED [None]
  - HAEMORRHAGIC STROKE [None]
  - HEMIANOPIA HOMONYMOUS [None]
  - HYPERTENSION [None]
  - PROTEIN TOTAL DECREASED [None]
  - PROTEINURIA [None]
  - SOMNOLENCE [None]
  - VENTRICULAR HYPERTROPHY [None]
